FAERS Safety Report 7391196-0 (Version None)
Quarter: 2011Q2

REPORT INFORMATION
  Report Type: 
  Country: None (occurrence: None)
  Receive Date: 20110404
  Receipt Date: 20100517
  Transmission Date: 20111010
  Serious: Yes (Other)
  Sender: FDA-Public Use
  Company Number: US-PFIZER INC-2010061971

PATIENT
  Sex: Female
  Weight: 61.678 kg

DRUGS (5)
  1. ALLEGRA [Concomitant]
     Indication: HYPERSENSITIVITY
     Dosage: 180 MG, 1X/DAY
     Route: 048
  2. FLONASE [Concomitant]
     Indication: HYPERSENSITIVITY
     Dosage: UNK
     Route: 045
  3. SERTRALINE HYDROCHLORIDE [Suspect]
     Indication: DEPRESSION
     Dosage: 100 MG, 1X/DAY
     Route: 048
  4. SERTRALINE HYDROCHLORIDE [Suspect]
     Indication: POST-TRAUMATIC STRESS DISORDER
  5. AMBIEN [Concomitant]
     Indication: POST-TRAUMATIC STRESS DISORDER
     Dosage: 2.5 MG, 1X/DAY
     Route: 048

REACTIONS (5)
  - NIGHTMARE [None]
  - DRUG INEFFECTIVE [None]
  - MENTAL DISORDER [None]
  - HOT FLUSH [None]
  - BLOOD CHOLESTEROL INCREASED [None]
